FAERS Safety Report 15167820 (Version 6)
Quarter: 2018Q4

REPORT INFORMATION
  Report Type: Report from Study
  Country: US (occurrence: US)
  Receive Date: 20180719
  Receipt Date: 20181219
  Transmission Date: 20190204
  Serious: Yes (Death, Other)
  Sender: FDA-Public Use
  Company Number: PHEH2018US029465

PATIENT
  Sex: Female
  Weight: 97.96 kg

DRUGS (2)
  1. COSENTYX [Suspect]
     Active Substance: SECUKINUMAB
     Indication: PSORIASIS
     Dosage: 300 MG, QMO
     Route: 058
     Dates: start: 201801
  2. COSENTYX [Suspect]
     Active Substance: SECUKINUMAB
     Indication: PSORIATIC ARTHROPATHY

REACTIONS (8)
  - Pruritus [Unknown]
  - Dyspnoea [Unknown]
  - Lung disorder [Unknown]
  - Blood pressure abnormal [Unknown]
  - Dehydration [Unknown]
  - Pneumonia [Unknown]
  - Death [Fatal]
  - Urinary tract infection [Unknown]
